FAERS Safety Report 14967437 (Version 1)
Quarter: 2018Q2

REPORT INFORMATION
  Report Type: Report from Study
  Country: None (occurrence: US)
  Receive Date: 20180604
  Receipt Date: 20180604
  Transmission Date: 20180711
  Serious: Yes (Other)
  Sender: FDA-Public Use
  Company Number: US-ABBVIE-18K-163-2372173-00

PATIENT
  Age: 53 Year
  Sex: Female

DRUGS (1)
  1. HUMIRA [Suspect]
     Active Substance: ADALIMUMAB
     Indication: UVEITIS
     Route: 058
     Dates: start: 20180312

REACTIONS (4)
  - Systemic lupus erythematosus [Unknown]
  - Stress [Unknown]
  - Uveitis [Recovered/Resolved]
  - Butterfly rash [Unknown]

NARRATIVE: CASE EVENT DATE: 2018
